FAERS Safety Report 8918710 (Version 1)
Quarter: 2012Q4

REPORT INFORMATION
  Report Type: 
  Country: DE (occurrence: DE)
  Receive Date: 20121120
  Receipt Date: 20121120
  Transmission Date: 20130627
  Serious: Yes (Other)
  Sender: FDA-Public Use
  Company Number: DE-ELI_LILLY_AND_COMPANY-DE201211004292

PATIENT
  Age: 61 Year
  Sex: Male

DRUGS (3)
  1. BYETTA [Suspect]
     Indication: DIABETES MELLITUS
     Dosage: 5 ug, bid
     Route: 058
     Dates: start: 201210
  2. METFORMIN [Concomitant]
  3. ENALAPRIL [Concomitant]

REACTIONS (2)
  - Intestinal obstruction [Unknown]
  - Gastrointestinal disorder [Unknown]
